FAERS Safety Report 4840104-2 (Version None)
Quarter: 2005Q4

REPORT INFORMATION
  Report Type: 
  Country: None (occurrence: None)
  Receive Date: 20051125
  Receipt Date: 20051116
  Transmission Date: 20060501
  Serious: Yes (Other)
  Sender: FDA-Public Use
  Company Number: 2005156742

PATIENT
  Age: 54 Year
  Sex: Female
  Weight: 63.5036 kg

DRUGS (2)
  1. BENADRYL [Suspect]
     Indication: SEASONAL ALLERGY
     Dosage: ORAL
     Route: 048
     Dates: start: 20051115
  2. BENADRYL ALLERGY  COLD W/ PE (DIPHENHYDRAMINE, PHENYLEPHRINE, ACETAMIN [Suspect]
     Indication: SEASONAL ALLERGY
     Dosage: ORAL
     Route: 048
     Dates: start: 20051115, end: 20051115

REACTIONS (2)
  - FEELING ABNORMAL [None]
  - NAUSEA [None]
